FAERS Safety Report 5151018-5 (Version None)
Quarter: 2006Q4

REPORT INFORMATION
  Report Type: 
  Country: None (occurrence: None)
  Receive Date: 20061113
  Receipt Date: 20061113
  Transmission Date: 20070319
  Serious: Yes (Other)
  Sender: FDA-Public Use
  Company Number: None

PATIENT
  Age: 51 Year
  Sex: Male
  Weight: 79.3795 kg

DRUGS (6)
  1. LIPITOR [Suspect]
     Indication: BLOOD CHOLESTEROL INCREASED
     Dosage: 10 MG BY MOUTH AT BEDTIME
     Route: 048
     Dates: start: 20000101
  2. ATIVAN [Concomitant]
  3. VIAGRA [Concomitant]
  4. DOXAZOSIN MESYLATE [Concomitant]
  5. TYLENOL PM [Concomitant]
  6. WELLBUTRIN [Concomitant]

REACTIONS (1)
  - DEAFNESS [None]
